FAERS Safety Report 8574044-2 (Version None)
Quarter: 2012Q3

REPORT INFORMATION
  Report Type: 
  Country: None (occurrence: None)
  Receive Date: 20120806
  Receipt Date: 20120731
  Transmission Date: 20120928
  Serious: Yes (Other)
  Sender: FDA-Public Use
  Company Number: US-BAYER-2012-077414

PATIENT
  Sex: Female
  Weight: 53.515 kg

DRUGS (2)
  1. IBUPROFEN (ADVIL) [Concomitant]
  2. ASPIRIN [Suspect]
     Indication: ANALGESIC THERAPY
     Dosage: 325 MG, UNK
     Route: 048

REACTIONS (3)
  - OROPHARYNGEAL PAIN [None]
  - CHOKING SENSATION [None]
  - DYSPHONIA [None]
